FAERS Safety Report 5070225-3 (Version None)
Quarter: 2006Q3

REPORT INFORMATION
  Report Type: 
  Country: None (occurrence: None)
  Receive Date: 20060731
  Receipt Date: 20060713
  Transmission Date: 20061208
  Serious: Yes (Hospitalization)
  Sender: FDA-Public Use
  Company Number: 2005JP001088

PATIENT
  Age: 13 Year
  Sex: Male

DRUGS (5)
  1. PROTOPIC [Suspect]
     Dosage: 0.03%, TOPICAL
     Route: 061
  2. PALDES                 (CLOBETASONE BUTYRATE) [Concomitant]
  3. VOALLA                       (DEXAMETHASONE VALERATE) [Concomitant]
  4. WHITE PETROLEUM           (PETROLATUM) OINTMENT [Concomitant]
  5. HIRUDOID       (HEPARINOID) [Concomitant]

REACTIONS (1)
  - KAPOSI'S VARICELLIFORM ERUPTION [None]
